FAERS Safety Report 23743432 (Version 5)
Quarter: 2024Q2

REPORT INFORMATION
  Report Type: Spontaneous
  Country: JP (occurrence: JP)
  Receive Date: 20240415
  Receipt Date: 20240502
  Transmission Date: 20240716
  Serious: Yes (Life-Threatening, Hospitalization, Other)
  Sender: FDA-Public Use
  Company Number: JP-ONO-2024JP007372

PATIENT
  Age: 65 Year
  Sex: Male

DRUGS (4)
  1. BRAFTOVI [Suspect]
     Active Substance: ENCORAFENIB
     Indication: Colon cancer
     Dosage: 300 MG
     Route: 048
     Dates: start: 20240305, end: 20240403
  2. MEKTOVI [Suspect]
     Active Substance: BINIMETINIB
     Indication: Colon cancer
     Dosage: 90 MG
     Route: 048
     Dates: start: 20240305, end: 20240403
  3. CETUXIMAB [Suspect]
     Active Substance: CETUXIMAB
     Indication: Colon cancer
     Dosage: UNK
     Route: 041
     Dates: start: 20240305
  4. CETUXIMAB [Suspect]
     Active Substance: CETUXIMAB
     Dosage: UNK
     Route: 041
     Dates: end: 20240403

REACTIONS (10)
  - Disseminated intravascular coagulation [Recovered/Resolved]
  - Shock [Recovered/Resolved]
  - Rhabdomyolysis [Unknown]
  - Lung opacity [Recovering/Resolving]
  - Lung disorder [Recovering/Resolving]
  - Renal impairment [Recovering/Resolving]
  - Cardiac dysfunction [Recovered/Resolved]
  - Pneumonia [Unknown]
  - Euphoric mood [Unknown]
  - Dermatitis acneiform [Recovering/Resolving]

NARRATIVE: CASE EVENT DATE: 20240301
